FAERS Safety Report 5838331-0 (Version None)
Quarter: 2008Q3

REPORT INFORMATION
  Report Type: 
  Country: None (occurrence: None)
  Receive Date: 20080808
  Receipt Date: 20080415
  Transmission Date: 20090109
  Serious: Yes (Hospitalization)
  Sender: FDA-Public Use
  Company Number: PHHO2007JP15383

PATIENT
  Sex: Male
  Weight: 59 kg

DRUGS (3)
  1. EXFORGE [Suspect]
     Indication: ESSENTIAL HYPERTENSION
     Dosage: PLACEBO
     Route: 048
     Dates: start: 20070629, end: 20070725
  2. EXFORGE [Suspect]
     Dosage: 80/5MG
     Route: 048
     Dates: start: 20070726, end: 20070905
  3. LIVALO KOWA [Concomitant]
     Dates: start: 20060724

REACTIONS (10)
  - AORTIC THROMBOSIS [None]
  - DIABETIC KETOACIDOSIS [None]
  - DRY MOUTH [None]
  - GLYCOSYLATED HAEMOGLOBIN INCREASED [None]
  - HYPERGLYCAEMIA [None]
  - HYPOTENSION [None]
  - LATENT AUTOIMMUNE DIABETES IN ADULTS [None]
  - NOCTURIA [None]
  - POLLAKIURIA [None]
  - POLYDIPSIA [None]
